FAERS Safety Report 18191319 (Version 2)
Quarter: 2020Q3

REPORT INFORMATION
  Report Type: Spontaneous
  Country: US (occurrence: US)
  Receive Date: 20200825
  Receipt Date: 20200904
  Transmission Date: 20201103
  Serious: Yes (Life-Threatening, Hospitalization, Other)
  Sender: FDA-Public Use
  Company Number: US-MACLEODS PHARMACEUTICALS US LTD-MAC2020027754

PATIENT

DRUGS (3)
  1. DOXYCYCLINE. [Concomitant]
     Active Substance: DOXYCYCLINE
     Indication: PNEUMONIA
     Dosage: UNK
     Route: 048
  2. QUETIAPINE EXTENDED RELEASE [Suspect]
     Active Substance: QUETIAPINE
     Indication: PRODUCT USED FOR UNKNOWN INDICATION
     Dosage: 8.7 GRAM, SINGLE
     Route: 048
  3. OXYGEN. [Concomitant]
     Active Substance: OXYGEN
     Indication: CHRONIC OBSTRUCTIVE PULMONARY DISEASE
     Dosage: UNK
     Route: 065

REACTIONS (8)
  - Circulatory collapse [Recovering/Resolving]
  - Rib fracture [Unknown]
  - Lung infiltration [Unknown]
  - Hypotension [Recovering/Resolving]
  - Encephalopathy [Recovering/Resolving]
  - Unresponsive to stimuli [Unknown]
  - Intentional overdose [Recovering/Resolving]
  - Delirium [Recovering/Resolving]
